FAERS Safety Report 23664032 (Version 2)
Quarter: 2025Q1

REPORT INFORMATION
  Report Type: Spontaneous
  Country: US (occurrence: US)
  Receive Date: 20240322
  Receipt Date: 20250124
  Transmission Date: 20250409
  Serious: Yes (Other)
  Sender: SANOFI AVENTIS
  Company Number: US-SA-SAC20240321000077

PATIENT
  Sex: Female

DRUGS (15)
  1. DUPIXENT [Suspect]
     Active Substance: DUPILUMAB
     Indication: Asthma
     Dosage: 300 MG, QOW
     Route: 058
  2. PROAIR RESPICLICK [Concomitant]
     Active Substance: ALBUTEROL SULFATE
     Indication: Asthma
  3. ADVAIR HFA [Concomitant]
     Active Substance: FLUTICASONE PROPIONATE\SALMETEROL XINAFOATE
     Indication: Asthma
  4. QVAR REDIHALER [Concomitant]
     Active Substance: BECLOMETHASONE DIPROPIONATE
     Indication: Asthma
  5. CALCIUM [Concomitant]
     Active Substance: CALCIUM
  6. DORZOLAMIDE [Concomitant]
     Active Substance: DORZOLAMIDE
  7. VITAMINS NOS [Concomitant]
     Active Substance: VITAMINS
  8. FAMOTIDINE [Concomitant]
     Active Substance: FAMOTIDINE
  9. FISH OIL [Concomitant]
     Active Substance: FISH OIL
  10. FOLIC ACID [Concomitant]
     Active Substance: FOLIC ACID
  11. LATANOPROST [Concomitant]
     Active Substance: LATANOPROST
  12. PANTOPRAZOLE [Concomitant]
     Active Substance: PANTOPRAZOLE
  13. OMEPRAZOLE [Concomitant]
     Active Substance: OMEPRAZOLE
  14. SYNTHROID [Concomitant]
     Active Substance: LEVOTHYROXINE SODIUM
  15. AZULFIDINE [Concomitant]
     Active Substance: SULFASALAZINE

REACTIONS (8)
  - Colitis [Unknown]
  - Hip surgery [Unknown]
  - Device related infection [Unknown]
  - Eye disorder [Unknown]
  - Stress [Unknown]
  - Middle insomnia [Unknown]
  - Asthma [Unknown]
  - Dyspnoea [Unknown]
